FAERS Safety Report 8355204-2 (Version None)
Quarter: 2012Q2

REPORT INFORMATION
  Report Type: 
  Country: None (occurrence: None)
  Receive Date: 20120511
  Receipt Date: 20120503
  Transmission Date: 20120825
  Serious: Yes (Other)
  Sender: FDA-Public Use
  Company Number: US-US-EMD SERONO, INC.-7130784

PATIENT
  Sex: Female

DRUGS (1)
  1. REBIF [Suspect]
     Indication: PRODUCT USED FOR UNKNOWN INDICATION
     Route: 058
     Dates: start: 20110408

REACTIONS (7)
  - ENDOPHTHALMITIS [None]
  - TINNITUS [None]
  - INSOMNIA [None]
  - HEADACHE [None]
  - VISUAL IMPAIRMENT [None]
  - DRY EYE [None]
  - MACULAR CYST [None]
